FAERS Safety Report 5692810-8 (Version None)
Quarter: 2008Q2

REPORT INFORMATION
  Report Type: 
  Country: None (occurrence: None)
  Receive Date: 20080401
  Receipt Date: 20080315
  Transmission Date: 20081010
  Serious: Yes (Other)
  Sender: FDA-Public Use
  Company Number: ADE2008-0150

PATIENT
  Age: 31 Year
  Sex: Male
  Weight: 107 kg

DRUGS (3)
  1. MIRTAZAPINE [Suspect]
     Indication: DEPRESSION
     Dosage: 15 MG ORAL
     Route: 048
     Dates: start: 20080109, end: 20080201
  2. AMITRIPTYLINE HCL [Concomitant]
  3. FLUOXETINE [Concomitant]

REACTIONS (3)
  - AGGRESSION [None]
  - DEPRESSED LEVEL OF CONSCIOUSNESS [None]
  - SLEEP TERROR [None]
